FAERS Safety Report 10063459 (Version 1)
Quarter: 2014Q2

REPORT INFORMATION
  Report Type: Spontaneous
  Country: US (occurrence: US)
  Receive Date: 20140407
  Receipt Date: 20140407
  Transmission Date: 20141212
  Serious: No
  Sender: FDA-Public Use
  Company Number: US-009507513-1404USA000268

PATIENT
  Age: 52 Year
  Sex: Male

DRUGS (4)
  1. REMERON [Suspect]
     Indication: MAJOR DEPRESSION
     Dosage: 15 MG AT BED TIME
     Route: 048
  2. CITALOPRAM [Suspect]
     Indication: MAJOR DEPRESSION
     Dosage: 40 MG, QD
  3. VENLAFAXINE HYDROCHLORIDE [Suspect]
     Indication: MAJOR DEPRESSION
     Dosage: 75 MG, TID
  4. RISPERIDONE [Suspect]
     Indication: MAJOR DEPRESSION
     Dosage: 2 MG AT BED TIME

REACTIONS (1)
  - Therapy responder [Unknown]
